FAERS Safety Report 14475456 (Version 1)
Quarter: 2018Q1

REPORT INFORMATION
  Report Type: Spontaneous
  Country: US (occurrence: US)
  Receive Date: 20180131
  Receipt Date: 20180131
  Transmission Date: 20180509
  Serious: No
  Sender: FDA-Public Use
  Company Number: None

PATIENT
  Age: 5 Year
  Sex: Male

DRUGS (1)
  1. MONTELUKAST [Suspect]
     Active Substance: MONTELUKAST SODIUM
     Indication: ASTHMA
     Dates: start: 20120215, end: 20120615

REACTIONS (4)
  - Depression [None]
  - Oppositional defiant disorder [None]
  - Anger [None]
  - Abnormal behaviour [None]

NARRATIVE: CASE EVENT DATE: 20120315
